FAERS Safety Report 4707097-X (Version None)
Quarter: 2005Q3

REPORT INFORMATION
  Report Type: 
  Country: None (occurrence: None)
  Receive Date: 20050701
  Receipt Date: 20050621
  Transmission Date: 20060218
  Serious: Yes (Life-Threatening, Disabling, Other)
  Sender: FDA-Public Use
  Company Number: 2005032447

PATIENT
  Age: 66 Year
  Sex: Female
  Weight: 69 kg

DRUGS (6)
  1. CELEBREX [Suspect]
     Indication: ARTHRITIS
     Dosage: SEE IMAGE
     Route: 048
     Dates: start: 20030926, end: 20041007
  2. CELEBREX [Suspect]
     Indication: ARTHRITIS
     Dosage: SEE IMAGE
     Route: 048
     Dates: start: 20030926, end: 20041007
  3. CO-PROXAMOL (DEXTROPROPOXYPHEN HYDROCHLORIDE, PARACETAMOL) [Concomitant]
  4. BENDROFLUAZIDE (BENDROFLUMETHIAZIDE) [Concomitant]
  5. OILATUM  1 (PARAFFIN, LIQUID , WOOL FAT) [Concomitant]
  6. ALL THERAPEUTIC PRODUCTS (ALL OTHER THERAPEUTIC PRODUCTS) [Concomitant]

REACTIONS (6)
  - ASTHENIA [None]
  - BLINDNESS TRANSIENT [None]
  - CARDIOVASCULAR DISORDER [None]
  - DYSARTHRIA [None]
  - HEMIPARESIS [None]
  - TRANSIENT ISCHAEMIC ATTACK [None]
